FAERS Safety Report 10178302 (Version 1)
Quarter: 2014Q2

REPORT INFORMATION
  Report Type: Spontaneous
  Country: US (occurrence: None)
  Receive Date: 20140516
  Receipt Date: 20140516
  Transmission Date: 20141212
  Serious: No
  Sender: FDA-Public Use
  Company Number: None

PATIENT
  Age: 58 Year
  Sex: Male
  Weight: 122.93 kg

DRUGS (1)
  1. SOLVALDI [Suspect]
     Indication: PRODUCT USED FOR UNKNOWN INDICATION
     Dosage: SOVALDI-400MG?ONE QD?PO
     Route: 048
     Dates: start: 20140331

REACTIONS (4)
  - Accidental exposure to product [None]
  - Medication error [None]
  - Wrong drug administered [None]
  - Incorrect dose administered [None]
